FAERS Safety Report 22699910 (Version 4)
Quarter: 2024Q1

REPORT INFORMATION
  Report Type: Spontaneous
  Country: US (occurrence: US)
  Receive Date: 20230713
  Receipt Date: 20240112
  Transmission Date: 20240410
  Serious: No
  Sender: FDA-Public Use
  Company Number: US-GSKCCFUS-Case-01741861_AE-98028

PATIENT
  Sex: Female

DRUGS (5)
  1. BENLYSTA [Suspect]
     Active Substance: BELIMUMAB
     Indication: Thyroid disorder
     Dosage: 200 MG/ML, WE
     Route: 058
     Dates: start: 2023
  2. BENLYSTA [Suspect]
     Active Substance: BELIMUMAB
     Indication: Essential hypertension
  3. BENLYSTA [Suspect]
     Active Substance: BELIMUMAB
     Indication: Arthritis
  4. BENLYSTA [Suspect]
     Active Substance: BELIMUMAB
     Indication: Glomerulonephritis
  5. BENLYSTA [Suspect]
     Active Substance: BELIMUMAB
     Indication: Systemic lupus erythematosus

REACTIONS (12)
  - Dry eye [Not Recovered/Not Resolved]
  - Nausea [Unknown]
  - Anxiety [Unknown]
  - Confusional state [Unknown]
  - Aphasia [Unknown]
  - Disease recurrence [Unknown]
  - Dizziness [Unknown]
  - Protein urine present [Recovering/Resolving]
  - Product use in unapproved indication [Unknown]
  - Drug effective for unapproved indication [Unknown]
  - Therapeutic product effect delayed [Unknown]
  - Drug ineffective [Unknown]

NARRATIVE: CASE EVENT DATE: 20230101
